FAERS Safety Report 8112120-9 (Version None)
Quarter: 2012Q1

REPORT INFORMATION
  Report Type: 
  Country: None (occurrence: None)
  Receive Date: 20120203
  Receipt Date: 20120124
  Transmission Date: 20120608
  Serious: Yes (Hospitalization, Congenital Anomaly, Other)
  Sender: FDA-Public Use
  Company Number: US-PFIZER INC-2011127602

PATIENT
  Sex: Female

DRUGS (1)
  1. ZOLOFT [Suspect]
     Dosage: UNK
     Route: 064
     Dates: start: 20010101

REACTIONS (14)
  - FOETAL EXPOSURE DURING PREGNANCY [None]
  - VASCULAR ANOMALY [None]
  - MITRAL VALVE INCOMPETENCE [None]
  - TRANSPOSITION OF THE GREAT VESSELS [None]
  - ATRIAL SEPTAL DEFECT [None]
  - ARTERIAL INSUFFICIENCY [None]
  - SINUS ARRHYTHMIA [None]
  - HETEROTAXIA [None]
  - TRICUSPID VALVE INCOMPETENCE [None]
  - HEART DISEASE CONGENITAL [None]
  - VENTRICULAR SEPTAL DEFECT [None]
  - DOUBLE OUTLET RIGHT VENTRICLE [None]
  - PATENT DUCTUS ARTERIOSUS [None]
  - RIGHT VENTRICULAR HYPERTROPHY [None]
